FAERS Safety Report 19916109 (Version 1)
Quarter: 2021Q4

REPORT INFORMATION
  Report Type: Spontaneous
  Country: US (occurrence: US)
  Receive Date: 20211005
  Receipt Date: 20211005
  Transmission Date: 20220303
  Serious: Yes (Hospitalization, Other)
  Sender: FDA-Public Use
  Company Number: US-Y-MABS THERAPEUTICS-2119176

PATIENT
  Sex: Male

DRUGS (1)
  1. DANYELZA [Suspect]
     Active Substance: NAXITAMAB-GQGK
     Indication: Neuroblastoma
     Route: 042
     Dates: start: 20210816

REACTIONS (3)
  - Neuropathy peripheral [Recovered/Resolved]
  - Hypotension [Unknown]
  - Feeling hot [Unknown]

NARRATIVE: CASE EVENT DATE: 20210816
